FAERS Safety Report 10881229 (Version 1)
Quarter: 2015Q1

REPORT INFORMATION
  Report Type: Spontaneous
  Country: US (occurrence: None)
  Receive Date: 20150225
  Receipt Date: 20150225
  Transmission Date: 20150721
  Serious: No
  Sender: FDA-Public Use
  Company Number: None

PATIENT
  Age: 53 Year
  Sex: Male

DRUGS (1)
  1. PROCRIT [Suspect]
     Active Substance: ERYTHROPOIETIN
     Indication: COLON CANCER
     Dosage: 40,000 UNITS
     Route: 058
     Dates: start: 20150129

REACTIONS (2)
  - Pain in extremity [None]
  - Gait disturbance [None]
